FAERS Safety Report 8509555-9 (Version None)
Quarter: 2012Q3

REPORT INFORMATION
  Report Type: 
  Country: None (occurrence: None)
  Receive Date: 20120713
  Receipt Date: 20120710
  Transmission Date: 20120928
  Serious: Yes (Other)
  Sender: FDA-Public Use
  Company Number: PHHY2011US68681

PATIENT
  Sex: Female
  Weight: 68.027 kg

DRUGS (6)
  1. GILENYA [Suspect]
     Indication: RELAPSING-REMITTING MULTIPLE SCLEROSIS
     Dosage: 0.5 MG, QD
     Route: 048
     Dates: start: 20110725, end: 20110927
  2. GILENYA [Suspect]
     Dosage: 0.5 MG, DAILY
     Route: 048
     Dates: start: 20111201, end: 20120131
  3. NORCO [Suspect]
     Dosage: 325 MG, OT
  4. ALPRAZOLAM [Concomitant]
     Dosage: UNK UKN, OT
  5. BACLOFEN [Concomitant]
     Dosage: UNK UKN, OT
  6. ZOLOFT [Concomitant]
     Dosage: UNK UKN, OT

REACTIONS (13)
  - URTICARIA [None]
  - VISION BLURRED [None]
  - OEDEMA PERIPHERAL [None]
  - DIPLOPIA [None]
  - DRUG HYPERSENSITIVITY [None]
  - PRURITUS [None]
  - PAIN [None]
  - MALAISE [None]
  - DIARRHOEA [None]
  - BLISTER [None]
  - INSOMNIA [None]
  - FATIGUE [None]
  - MUSCULOSKELETAL STIFFNESS [None]
